FAERS Safety Report 12258222 (Version 1)
Quarter: 2016Q2

REPORT INFORMATION
  Report Type: Spontaneous
  Country: US (occurrence: US)
  Receive Date: 20160412
  Receipt Date: 20160412
  Transmission Date: 20160815
  Serious: No
  Sender: FDA-Public Use
  Company Number: US-SA-2015SA036144

PATIENT
  Age: 87 Year
  Sex: Female

DRUGS (2)
  1. FLUTICASONE [Concomitant]
     Active Substance: FLUTICASONE\FLUTICASONE PROPIONATE
     Route: 065
  2. ALLEGRA [Suspect]
     Active Substance: FEXOFENADINE HYDROCHLORIDE
     Indication: MULTIPLE ALLERGIES
     Dosage: ALLEGRA ALLERGY 24 HOUR GELCAP OTC
     Route: 065
     Dates: start: 20150315, end: 20150319

REACTIONS (2)
  - Drug ineffective [Unknown]
  - Blood pressure increased [Unknown]
